FAERS Safety Report 14713014 (Version 2)
Quarter: 2018Q2

REPORT INFORMATION
  Report Type: Spontaneous
  Country: US (occurrence: US)
  Receive Date: 20180404
  Receipt Date: 20180406
  Transmission Date: 20180711
  Serious: No
  Sender: FDA-Public Use
  Company Number: US-BEH-2018089428

PATIENT
  Age: 49 Year
  Sex: Female

DRUGS (5)
  1. HIZENTRA [Suspect]
     Active Substance: HUMAN IMMUNOGLOBULIN G
     Indication: IMMUNODEFICIENCY COMMON VARIABLE
     Dosage: UNK
     Route: 065
     Dates: start: 20180401, end: 20180401
  2. NYSTATIN. [Concomitant]
     Active Substance: NYSTATIN
     Route: 065
  3. HIZENTRA [Suspect]
     Active Substance: HUMAN IMMUNOGLOBULIN G
     Dosage: 5 G, TIW
     Route: 058
     Dates: start: 20170731
  4. DIFLUCAN [Concomitant]
     Active Substance: FLUCONAZOLE
     Route: 065
  5. ZITHROMAX [Concomitant]
     Active Substance: AZITHROMYCIN DIHYDRATE
     Route: 065

REACTIONS (2)
  - Oral candidiasis [Unknown]
  - Oral candidiasis [Unknown]

NARRATIVE: CASE EVENT DATE: 201710
